FAERS Safety Report 17543041 (Version 1)
Quarter: 2020Q1

REPORT INFORMATION
  Report Type: Spontaneous
  Country: US (occurrence: US)
  Receive Date: 20200316
  Receipt Date: 20200316
  Transmission Date: 20200409
  Serious: No
  Sender: FDA-Public Use
  Company Number: US-009507513-2002USA007944

PATIENT
  Sex: Female

DRUGS (2)
  1. NUVARING [Suspect]
     Active Substance: ETHINYL ESTRADIOL\ETONOGESTREL
     Indication: CONTRACEPTION
     Dosage: LEAVING 1 RING IN FOR 3 WEEKS AND THEN REMOVING FOR 1 WEEK
     Route: 067
     Dates: start: 20200102, end: 20200217
  2. NUVARING [Suspect]
     Active Substance: ETHINYL ESTRADIOL\ETONOGESTREL
     Dosage: LEAVING 1 RING IN FOR 3 WEEKS AND THEN REMOVING FOR 1 WEEK
     Route: 067
     Dates: start: 20200217

REACTIONS (2)
  - Medical device site discomfort [Unknown]
  - Inappropriate schedule of product administration [Unknown]

NARRATIVE: CASE EVENT DATE: 20200217
